FAERS Safety Report 4863565-1 (Version None)
Quarter: 2005Q4

REPORT INFORMATION
  Report Type: 
  Country: None (occurrence: None)
  Receive Date: 20051222
  Receipt Date: 20050426
  Transmission Date: 20060501
  Serious: No
  Sender: FDA-Public Use
  Company Number: TAP2005Q00474

PATIENT
  Age: 54 Year
  Sex: Male
  Weight: 87.7 kg

DRUGS (5)
  1. FLONASE [Suspect]
     Indication: SEASONAL ALLERGY
     Route: 045
     Dates: end: 20050314
  2. PREVACID [Suspect]
     Dosage: 30MG TWICE PER DAY
     Route: 048
     Dates: start: 20050110
  3. LIPITOR [Suspect]
     Route: 065
     Dates: end: 20050314
  4. LORATADINE [Concomitant]
  5. ATENOLOL [Concomitant]

REACTIONS (1)
  - SENSATION OF FOREIGN BODY [None]
